FAERS Safety Report 10065217 (Version 1)
Quarter: 2014Q1

REPORT INFORMATION
  Report Type: Spontaneous
  Country: US (occurrence: None)
  Receive Date: 20140328
  Receipt Date: 20140328
  Transmission Date: 20141002
  Serious: No
  Sender: FDA-Public Use
  Company Number: CABO-13003836

PATIENT
  Age: 56 Year
  Sex: Female

DRUGS (14)
  1. COMETRIQ [Suspect]
     Indication: THYROID CANCER
     Route: 048
     Dates: start: 20131222, end: 20140205
  2. LEVOXYL [Concomitant]
  3. KEPPRA [Concomitant]
  4. SULINDAC [Concomitant]
  5. CELEXA [Concomitant]
  6. BUMEX [Concomitant]
  7. ZYRTEC [Concomitant]
  8. PREVACID [Concomitant]
  9. CITRICAL [Concomitant]
  10. MAGNESIUM [Concomitant]
  11. POTASSIUM [Concomitant]
  12. ENDOCET [Concomitant]
  13. XANAX [Concomitant]
  14. OCTREOTIDE [Concomitant]

REACTIONS (12)
  - Tongue disorder [None]
  - Ulcer [None]
  - Fungal infection [None]
  - Nasal ulcer [None]
  - Fatigue [None]
  - Dysgeusia [None]
  - Stomatitis [None]
  - Constipation [None]
  - Diarrhoea [None]
  - Skin exfoliation [None]
  - Blister [None]
  - Dyspepsia [None]
